FAERS Safety Report 15317876 (Version 1)
Quarter: 2018Q3

REPORT INFORMATION
  Report Type: Spontaneous
  Country: US (occurrence: US)
  Receive Date: 20180816
  Receipt Date: 20180816
  Transmission Date: 20181010
  Serious: No
  Sender: FDA-Public Use
  Company Number: None

PATIENT
  Age: 80 Year
  Sex: Male
  Weight: 97.98 kg

DRUGS (16)
  1. XGEVA [Concomitant]
     Active Substance: DENOSUMAB
  2. CALCIUM [Concomitant]
     Active Substance: CALCIUM
  3. IRON [Concomitant]
     Active Substance: IRON
  4. TRAMADOL. [Concomitant]
     Active Substance: TRAMADOL
  5. LIPITOR [Concomitant]
     Active Substance: ATORVASTATIN CALCIUM
  6. GLIMEPIRIDE. [Concomitant]
     Active Substance: GLIMEPIRIDE
  7. PREDNISONE. [Concomitant]
     Active Substance: PREDNISONE
  8. CLOPIDOGREL [Concomitant]
     Active Substance: CLOPIDOGREL BISULFATE
  9. VITAMIN C [Concomitant]
     Active Substance: ASCORBIC ACID
  10. LISINOPRIL. [Concomitant]
     Active Substance: LISINOPRIL
  11. BACLOFEN. [Concomitant]
     Active Substance: BACLOFEN
  12. VITAMIN B [Concomitant]
     Active Substance: VITAMIN B
  13. PANTOPRAZOLE [Concomitant]
     Active Substance: PANTOPRAZOLE
  14. SYNTHROID [Concomitant]
     Active Substance: LEVOTHYROXINE SODIUM
  15. JANUMET [Concomitant]
     Active Substance: METFORMIN HYDROCHLORIDE\SITAGLIPTIN PHOSPHATE
  16. ZYTIGA [Suspect]
     Active Substance: ABIRATERONE ACETATE
     Indication: PROSTATE CANCER
     Route: 048
     Dates: start: 20180321

REACTIONS (1)
  - Diarrhoea [None]
